FAERS Safety Report 23508931 (Version 2)
Quarter: 2024Q1

REPORT INFORMATION
  Report Type: Report from Study
  Country: CA (occurrence: CA)
  Receive Date: 20240209
  Receipt Date: 20240214
  Transmission Date: 20240410
  Serious: Yes (Hospitalization, Other)
  Sender: FDA-Public Use
  Company Number: CA-ABBVIE-5624267

PATIENT
  Sex: Female

DRUGS (4)
  1. RINVOQ [Suspect]
     Active Substance: UPADACITINIB
     Indication: Rheumatoid arthritis
     Route: 048
     Dates: start: 20221116
  2. TAMIFLU [Concomitant]
     Active Substance: OSELTAMIVIR PHOSPHATE
     Indication: Product used for unknown indication
  3. VANCOMYCIN [Concomitant]
     Active Substance: VANCOMYCIN
     Indication: Product used for unknown indication
  4. SEPTRA [Concomitant]
     Active Substance: SULFAMETHOXAZOLE\TRIMETHOPRIM
     Indication: Product used for unknown indication

REACTIONS (15)
  - Infection [Unknown]
  - Joint stiffness [Unknown]
  - Joint swelling [Unknown]
  - Malaise [Unknown]
  - Gait inability [Unknown]
  - Arthritis bacterial [Unknown]
  - Hypertension [Not Recovered/Not Resolved]
  - Tachycardia [Unknown]
  - Lung infiltration [Unknown]
  - Non-cardiogenic pulmonary oedema [Unknown]
  - Nasopharyngitis [Unknown]
  - Immunosuppression [Unknown]
  - Pneumonia viral [Unknown]
  - Gait disturbance [Unknown]
  - Influenza [Unknown]
